FAERS Safety Report 11819134 (Version 3)
Quarter: 2016Q2

REPORT INFORMATION
  Report Type: Spontaneous
  Country: US (occurrence: US)
  Receive Date: 20151210
  Receipt Date: 20160426
  Transmission Date: 20160815
  Serious: No
  Sender: FDA-Public Use
  Company Number: US-JNJFOC-20151126161

PATIENT
  Age: 7 Year
  Sex: Male

DRUGS (6)
  1. RISPERIDONE. [Suspect]
     Active Substance: RISPERIDONE
     Indication: FOETAL ALCOHOL SYNDROME
     Dosage: VARYING DOSES OF 0.25 MG TO 2 MG
     Route: 048
     Dates: start: 201008, end: 201304
  2. RISPERIDONE. [Suspect]
     Active Substance: RISPERIDONE
     Indication: PRODUCT USED FOR UNKNOWN INDICATION
     Route: 048
  3. RISPERIDONE. [Suspect]
     Active Substance: RISPERIDONE
     Indication: ATTENTION DEFICIT/HYPERACTIVITY DISORDER
     Dosage: VARYING DOSES OF 0.25 MG TO 2 MG
     Route: 048
     Dates: start: 201008, end: 201304
  4. RISPERIDONE. [Suspect]
     Active Substance: RISPERIDONE
     Indication: FOETAL ALCOHOL SYNDROME
     Route: 048
     Dates: start: 201212, end: 201302
  5. RISPERDAL [Suspect]
     Active Substance: RISPERIDONE
     Indication: PRODUCT USED FOR UNKNOWN INDICATION
     Route: 048
  6. RISPERIDONE. [Suspect]
     Active Substance: RISPERIDONE
     Indication: ATTENTION DEFICIT/HYPERACTIVITY DISORDER
     Route: 048
     Dates: start: 201212, end: 201302

REACTIONS (5)
  - Product use issue [Unknown]
  - Emotional distress [Unknown]
  - Off label use [Unknown]
  - Gynaecomastia [Unknown]
  - Weight increased [Unknown]

NARRATIVE: CASE EVENT DATE: 201008
